FAERS Safety Report 8385555-7 (Version None)
Quarter: 2012Q2

REPORT INFORMATION
  Report Type: 
  Country: None (occurrence: None)
  Receive Date: 20120525
  Receipt Date: 20120516
  Transmission Date: 20120825
  Serious: No
  Sender: FDA-Public Use
  Company Number: US-BIOGENIDEC-2012BI017376

PATIENT
  Age: 70 Year
  Sex: Male

DRUGS (3)
  1. AVONEX [Suspect]
     Route: 030
     Dates: start: 19990401
  2. AVONEX [Suspect]
     Indication: MULTIPLE SCLEROSIS
     Route: 030
  3. AVONEX [Suspect]
     Route: 030
     Dates: start: 19970601

REACTIONS (5)
  - OEDEMA MOUTH [None]
  - SWELLING FACE [None]
  - DYSPHAGIA [None]
  - PRURITUS [None]
  - ERYTHEMA [None]
